FAERS Safety Report 6508238-4 (Version None)
Quarter: 2009Q4

REPORT INFORMATION
  Report Type: 
  Country: None (occurrence: None)
  Receive Date: 20091221
  Receipt Date: 20081212
  Transmission Date: 20100525
  Serious: No
  Sender: FDA-Public Use
  Company Number: US-ASTRAZENECA-2008UW27887

PATIENT
  Sex: Male

DRUGS (3)
  1. CRESTOR [Suspect]
  2. MORPHINE [Concomitant]
  3. METHADONE HYDROCHLORIDE [Concomitant]

REACTIONS (1)
  - HYPOAESTHESIA [None]
